FAERS Safety Report 15648863 (Version 2)
Quarter: 2019Q2

REPORT INFORMATION
  Report Type: Report from Study
  Country: JP (occurrence: JP)
  Receive Date: 20181122
  Receipt Date: 20190621
  Transmission Date: 20190711
  Serious: Yes (Hospitalization)
  Sender: FDA-Public Use
  Company Number: JP-ASTRAZENECA-2018SF52895

PATIENT
  Age: 61 Year
  Sex: Female
  Weight: 48 kg

DRUGS (1)
  1. LYNPARZA [Suspect]
     Active Substance: OLAPARIB
     Indication: OVARIAN CANCER
     Route: 048
     Dates: start: 20180725, end: 20180923

REACTIONS (1)
  - Physical deconditioning [Recovering/Resolving]

NARRATIVE: CASE EVENT DATE: 20181116
